FAERS Safety Report 6701681-X (Version None)
Quarter: 2010Q2

REPORT INFORMATION
  Report Type: 
  Country: None (occurrence: None)
  Receive Date: 20100427
  Receipt Date: 20100419
  Transmission Date: 20101027
  Serious: Yes (Death, Hospitalization)
  Sender: FDA-Public Use
  Company Number: 2009AL004466

PATIENT
  Age: 10 Day
  Sex: Male

DRUGS (1)
  1. FLUOXETINE [Suspect]
     Indication: DRUG EXPOSURE DURING PREGNANCY
     Dosage: ; TRMA

REACTIONS (6)
  - CARDIOVASCULAR DISORDER [None]
  - CEREBRAL DISORDER [None]
  - DEATH NEONATAL [None]
  - MATERNAL DRUGS AFFECTING FOETUS [None]
  - NEONATAL ANOXIA [None]
  - PREMATURE BABY [None]
